FAERS Safety Report 6616522-9 (Version None)
Quarter: 2010Q1

REPORT INFORMATION
  Report Type: 
  Country: None (occurrence: None)
  Receive Date: 20100305
  Receipt Date: 20100225
  Transmission Date: 20100710
  Serious: Yes (Hospitalization)
  Sender: FDA-Public Use
  Company Number: GXKR2010GB02321

PATIENT
  Age: 41 Week
  Sex: Female
  Weight: 105.95 kg

DRUGS (4)
  1. FERROUS SULFATE TAB [Suspect]
     Indication: ANAEMIA
     Dosage: 200 MG, UNK
     Route: 048
     Dates: start: 20100208, end: 20100209
  2. RAMIPRIL [Suspect]
     Indication: HYPERTENSION
     Dosage: 1.25 MG, UNK
     Route: 048
     Dates: start: 20100208, end: 20100209
  3. CALCIUM CARBONATE (NCH) [Suspect]
     Route: 065
  4. BENDROFLUMETHIAZIDE [Concomitant]
     Indication: HYPERTENSION
     Dosage: 2.5 MG, UNK
     Route: 048

REACTIONS (4)
  - FACIAL PAIN [None]
  - LIP SWELLING [None]
  - NASAL CONGESTION [None]
  - SWELLING FACE [None]
